FAERS Safety Report 5926440-7 (Version None)
Quarter: 2008Q4

REPORT INFORMATION
  Report Type: 
  Country: None (occurrence: None)
  Receive Date: 20081022
  Receipt Date: 20081002
  Transmission Date: 20090506
  Serious: Yes (Death, Life-Threatening, Hospitalization)
  Sender: FDA-Public Use
  Company Number: AR-ROCHE-589235

PATIENT
  Sex: Female
  Weight: 57.5 kg

DRUGS (11)
  1. CAPECITABINE [Suspect]
     Indication: BREAST CANCER
     Dosage: DOSE BLINDED
     Route: 048
     Dates: start: 20080903, end: 20080918
  2. ENZASTAURIN [Suspect]
     Indication: BREAST CANCER
     Dosage: DRUG BLINDED
     Route: 048
     Dates: start: 20080903, end: 20080918
  3. ENALAPRIL MALEATE [Concomitant]
     Dates: start: 19870101, end: 20080918
  4. DEXAMETHASONE [Concomitant]
     Indication: ANOREXIA
     Dates: start: 20080822
  5. ACENOCOUMAROL [Concomitant]
     Indication: DEEP VEIN THROMBOSIS
     Dates: start: 20080904, end: 20080917
  6. RANITIDINE [Concomitant]
     Indication: PROPHYLAXIS
     Dates: start: 20080822
  7. METOCLOPRAMIDE [Concomitant]
     Dates: start: 20080903
  8. FUROSEMIDE [Concomitant]
     Dates: start: 20080916, end: 20080918
  9. SPIRONOLACTONE [Concomitant]
     Dates: start: 20080915, end: 20080915
  10. AMOXICILLIN [Concomitant]
     Indication: BRONCHITIS
     Dates: start: 20080909, end: 20080916
  11. AMOXICILLIN AND CLAVULANATE POTASSIUM [Concomitant]
     Indication: BRONCHITIS
     Dates: start: 20080907, end: 20080908

REACTIONS (3)
  - LEUKOPENIA [None]
  - MUCOSAL INFLAMMATION [None]
  - SEPTIC SHOCK [None]
